FAERS Safety Report 16660734 (Version 4)
Quarter: 2019Q4

REPORT INFORMATION
  Report Type: Spontaneous
  Country: US (occurrence: US)
  Receive Date: 20190802
  Receipt Date: 20191010
  Transmission Date: 20200122
  Serious: Yes (Other)
  Sender: FDA-Public Use
  Company Number: US-PFIZER INC-2019328139

PATIENT
  Age: 21 Year
  Sex: Female

DRUGS (2)
  1. PROCAINE [Suspect]
     Active Substance: PROCAINE
     Indication: LOCAL ANAESTHESIA
     Dosage: UNK 2 CC. 50 (0 GR. 05 NOVOCAINE + 0 GR. 00001)
  2. EPINEPHRINE. [Suspect]
     Active Substance: EPINEPHRINE
     Indication: LOCAL ANAESTHESIA
     Dosage: UNK (INJECTION) UNKNOWN CONCENTRATION

REACTIONS (2)
  - Gangrene [Recovered/Resolved]
  - Extremity necrosis [Recovered/Resolved]
